FAERS Safety Report 16536423 (Version 7)
Quarter: 2019Q4

REPORT INFORMATION
  Report Type: Spontaneous
  Country: DE (occurrence: DE)
  Receive Date: 20190706
  Receipt Date: 20191220
  Transmission Date: 20200122
  Serious: Yes (Death, Life-Threatening, Hospitalization, Other)
  Sender: FDA-Public Use
  Company Number: DE-ACCORD-136413

PATIENT
  Age: 45 Year
  Sex: Female
  Weight: 70 kg

DRUGS (4)
  1. RITUXIMAB. [Suspect]
     Active Substance: RITUXIMAB
     Indication: B-CELL LYMPHOMA
     Dosage: SIX CYCLES
     Route: 042
     Dates: start: 201707, end: 201712
  2. BENDAMUSTINE/BENDAMUSTINE HYDROCHLORIDE [Suspect]
     Active Substance: BENDAMUSTINE HYDROCHLORIDE
     Indication: B-CELL LYMPHOMA
     Route: 041
     Dates: start: 201707, end: 201712
  3. BENDAMUSTINE/BENDAMUSTINE HYDROCHLORIDE [Suspect]
     Active Substance: BENDAMUSTINE HYDROCHLORIDE
     Indication: B-CELL LYMPHOMA
     Dosage: SIX CYCLES
     Route: 042
     Dates: start: 201707, end: 201712
  4. OBINUTUZUMAB. [Suspect]
     Active Substance: OBINUTUZUMAB
     Indication: B-CELL LYMPHOMA
     Dosage: EVERY 8 WEEKS, THERAPY END DATE OF WAS 09-JAN-2019
     Route: 042
     Dates: start: 20180219

REACTIONS (13)
  - Retroperitoneal haemorrhage [Unknown]
  - Epilepsy [Unknown]
  - Acute hepatic failure [Unknown]
  - Immunosuppression [Unknown]
  - Hypogammaglobulinaemia [Fatal]
  - Renal failure [Unknown]
  - Deafness [Not Recovered/Not Resolved]
  - Enterovirus infection [Fatal]
  - Multiple organ dysfunction syndrome [Fatal]
  - Large intestinal ulcer [Not Recovered/Not Resolved]
  - Hypotension [Unknown]
  - Disturbance in attention [Not Recovered/Not Resolved]
  - Lower gastrointestinal haemorrhage [Unknown]

NARRATIVE: CASE EVENT DATE: 2019
